FAERS Safety Report 13429798 (Version 4)
Quarter: 2017Q2

REPORT INFORMATION
  Report Type: Report from Study
  Country: US (occurrence: US)
  Receive Date: 20170412
  Receipt Date: 20170607
  Transmission Date: 20170830
  Serious: Yes (Other)
  Sender: FDA-Public Use
  Company Number: US-AMGEN-USASL2017030512

PATIENT
  Age: 44 Year
  Sex: Female
  Weight: 103.4 kg

DRUGS (3)
  1. REPATHA [Suspect]
     Active Substance: EVOLOCUMAB
     Indication: BLOOD CHOLESTEROL INCREASED
  2. REPATHA [Suspect]
     Active Substance: EVOLOCUMAB
     Indication: BLOOD CHOLESTEROL INCREASED
  3. REPATHA [Suspect]
     Active Substance: EVOLOCUMAB
     Indication: LOW DENSITY LIPOPROTEIN INCREASED
     Dosage: 420 MG/3.5 ML, Q2WK
     Route: 058
     Dates: start: 20170313

REACTIONS (4)
  - Injection site swelling [Recovered/Resolved]
  - Surgery [Unknown]
  - Underdose [Unknown]
  - Intercepted drug dispensing error [Unknown]

NARRATIVE: CASE EVENT DATE: 2017
